FAERS Safety Report 16862851 (Version 1)
Quarter: 2019Q3

REPORT INFORMATION
  Report Type: Report from Study
  Country: US (occurrence: US)
  Receive Date: 20190927
  Receipt Date: 20190927
  Transmission Date: 20191005
  Serious: Yes (Hospitalization)
  Sender: FDA-Public Use
  Company Number: US-VERTEX PHARMACEUTICALS-2019-009025

PATIENT
  Age: 38 Year
  Sex: Female
  Weight: 62 kg

DRUGS (22)
  1. CREON [Concomitant]
     Active Substance: PANCRELIPASE AMYLASE\PANCRELIPASE LIPASE\PANCRELIPASE PROTEASE
     Dosage: 24,000 UNITS
     Route: 048
  2. TRANEXAMIC ACID. [Concomitant]
     Active Substance: TRANEXAMIC ACID
     Dosage: 2 DOSAGE FORM, TID
     Route: 048
  3. ALBUTEROL [SALBUTAMOL] [Concomitant]
     Active Substance: ALBUTEROL
     Dosage: 90 MCG/INH AEROSOL, 2 PUFF, Q4HR, PRN
  4. CEFTAZIDIME. [Concomitant]
     Active Substance: CEFTAZIDIME
     Dosage: 1 G INJECTION
  5. DORNASE ALFA. [Concomitant]
     Active Substance: DORNASE ALFA
     Dosage: 2.5 MG = 2.5 ML,  BID
  6. ACAPELLA [Concomitant]
  7. SODIUM CHLORIDE. [Concomitant]
     Active Substance: SODIUM CHLORIDE
  8. CARAFATE [Concomitant]
     Active Substance: SUCRALFATE
     Dosage: UNK, QID
     Route: 048
  9. VX-661/VX-770 [Suspect]
     Active Substance: IVACAFTOR\TEZACAFTOR
     Indication: CYSTIC FIBROSIS
     Dosage: 661 100 MG,QD AND 770 150MG,QD
     Route: 048
     Dates: start: 20190729, end: 20190916
  10. SYMBICORT [Concomitant]
     Active Substance: BUDESONIDE\FORMOTEROL FUMARATE DIHYDRATE
     Dosage: 160-4.5 MCG, 2 PUFF,  BID
  11. ESOMEPRAZOLE. [Concomitant]
     Active Substance: ESOMEPRAZOLE MAGNESIUM
     Dosage: 1 DOSAGE FORM, QD
     Route: 048
  12. SPIRIVA RESPIMAT [Concomitant]
     Active Substance: TIOTROPIUM BROMIDE
     Dosage: 2.5 MCG, 2 PUFF QD
  13. VITAMIN D3 [Concomitant]
     Active Substance: CHOLECALCIFEROL
     Dosage: 3000 IU,  QD
     Route: 048
  14. GLUCAGON. [Concomitant]
     Active Substance: GLUCAGON
     Dosage: 1 MG
     Route: 030
  15. SINGULAIR [Concomitant]
     Active Substance: MONTELUKAST SODIUM
     Dosage: 1 DOSAGE FORM, QD
     Route: 048
  16. ZOFRAN [Concomitant]
     Active Substance: ONDANSETRON HYDROCHLORIDE
     Dosage: 1 DOSAGE FORM, Q8HR
     Route: 048
  17. URSODIOL. [Concomitant]
     Active Substance: URSODIOL
     Dosage: 2 DOSAGE FORM, BID
     Route: 048
  18. AZITHROMYCIN ANHYDROUS. [Concomitant]
     Active Substance: AZITHROMYCIN ANHYDROUS
     Dosage: 1 DOSAGE FORM (M-W-F)
     Route: 048
  19. LEVOTHYROXINE. [Concomitant]
     Active Substance: LEVOTHYROXINE
     Dosage: 1 DOSAGE FORM, QD
     Route: 048
  20. HUMALOG [Concomitant]
     Active Substance: INSULIN LISPRO
     Dosage: 100 UNITS/ML
     Route: 058
  21. VX-445 [Suspect]
     Active Substance: ELEXACAFTOR
     Indication: CYSTIC FIBROSIS
     Dosage: 200 MG, QD
     Route: 048
     Dates: start: 20190729, end: 20190916
  22. METRONIDAZOLE. [Concomitant]
     Active Substance: METRONIDAZOLE
     Indication: GASTRIC ULCER

REACTIONS (1)
  - Neuropathy peripheral [Not Recovered/Not Resolved]

NARRATIVE: CASE EVENT DATE: 20190916
